FAERS Safety Report 10699829 (Version 1)
Quarter: 2014Q4

REPORT INFORMATION
  Report Type: Spontaneous
  Country: BR (occurrence: None)
  Receive Date: 20141215
  Receipt Date: 20141215
  Transmission Date: 20150529
  Serious: Yes (Other)
  Sender: FDA-Public Use
  Company Number: GAM-437-14-BR

PATIENT
  Age: 36 Year
  Sex: Male

DRUGS (4)
  1. OCTAGAM IMMUNE GLOBULIN (HUMAN) [Suspect]
     Active Substance: HUMAN IMMUNOGLOBULIN G
     Indication: MULTIFOCAL MOTOR NEUROPATHY
     Dosage: 2 MG/KG (5X 1/ MONTH)  INTRAVENOUS (NOT OTHERWISE SPECIFIED)
     Route: 042
  2. HUMAN NORMAL IMMUNOGLOBULIN (IV) (TRADENAME UNKNOWN) [Suspect]
     Active Substance: HUMAN IMMUNOGLOBULIN G
     Indication: MULTIFOCAL MOTOR NEUROPATHY
     Dosage: 2 MG/KG (5X 1 (MONTH) INTRAVENOUS (NOT OTHERWISE SPECIFIED)
     Route: 042
  3. CYCLOPHOSPHAMIDE. [Concomitant]
     Active Substance: CYCLOPHOSPHAMIDE
  4. VIVAGLOBIN [Suspect]
     Active Substance: HUMAN IMMUNOGLOBULIN G
     Indication: MULTIFOCAL MOTOR NEUROPATHY
     Dosage: 2 MG/KG (5X 1/ MONTH) INTRAVENOUS (NOT OTHERWISE SPECIFIED)

REACTIONS (3)
  - Condition aggravated [None]
  - Gingivitis [None]
  - Periodontitis [None]

NARRATIVE: CASE EVENT DATE: 201304
